FAERS Safety Report 6143984-6 (Version None)
Quarter: 2009Q2

REPORT INFORMATION
  Report Type: 
  Country: None (occurrence: None)
  Receive Date: 20090406
  Receipt Date: 20090331
  Transmission Date: 20091009
  Serious: Yes (Hospitalization)
  Sender: FDA-Public Use
  Company Number: US-JNJFOC-20090106179

PATIENT
  Age: 73 Year

DRUGS (3)
  1. LEVAQUIN [Suspect]
     Indication: ASTHMA
  2. LEVAQUIN [Suspect]
     Route: 042
  3. UNKNOWN MEDICATION [Concomitant]
     Route: 065

REACTIONS (5)
  - CARDIAC DISORDER [None]
  - GASTRIC DISORDER [None]
  - HYPERSENSITIVITY [None]
  - HYPERTENSION [None]
  - TENDONITIS [None]
